FAERS Safety Report 19897892 (Version 5)
Quarter: 2023Q4

REPORT INFORMATION
  Report Type: Spontaneous
  Country: US (occurrence: US)
  Receive Date: 20210929
  Receipt Date: 20231023
  Transmission Date: 20240109
  Serious: Yes (Hospitalization)
  Sender: FDA-Public Use
  Company Number: US-AMNEAL PHARMACEUTICALS-2021-AMRX-02135

PATIENT
  Age: 64 Year
  Sex: Male
  Weight: 128.3 kg

DRUGS (3)
  1. RYTARY [Suspect]
     Active Substance: CARBIDOPA\LEVODOPA
     Indication: Parkinson^s disease
     Dosage: 2 CAPSULES, 4X/DAY
     Route: 048
     Dates: start: 2016
  2. MIDODRINE [Concomitant]
     Active Substance: MIDODRINE
     Indication: Mental disorder
     Dosage: 10 MILLIGRAM
     Route: 065
  3. MEMANTINE [Concomitant]
     Active Substance: MEMANTINE
     Indication: Product used for unknown indication
     Dosage: 10 MILLIGRAM
     Route: 065

REACTIONS (4)
  - Spinal operation [Unknown]
  - Drooling [Recovering/Resolving]
  - Nightmare [Recovering/Resolving]
  - Product size issue [Unknown]

NARRATIVE: CASE EVENT DATE: 20210529
